FAERS Safety Report 8480775-5 (Version None)
Quarter: 2012Q3

REPORT INFORMATION
  Report Type: 
  Country: None (occurrence: None)
  Receive Date: 20120702
  Receipt Date: 20120622
  Transmission Date: 20120928
  Serious: Yes (Hospitalization)
  Sender: FDA-Public Use
  Company Number: US-BAYER-2012-017499

PATIENT
  Age: 20 Year
  Sex: Female
  Weight: 126.98 kg

DRUGS (5)
  1. DROSPIRENONE AND ETHINYL ESTRADIOL [Suspect]
     Dosage: UNK
     Dates: start: 20070101, end: 20080101
  2. IBUPROFEN [Concomitant]
     Indication: INFLAMMATION
     Dosage: 80 MG, UNK
     Route: 048
  3. PROMETHAZINE [Concomitant]
     Route: 048
  4. VICODIN [Concomitant]
     Indication: PAIN
     Route: 048
  5. MULTI-VITAMINS [Concomitant]
     Route: 048

REACTIONS (3)
  - PAIN [None]
  - CHOLECYSTITIS CHRONIC [None]
  - GALLBLADDER INJURY [None]
